FAERS Safety Report 5276013-7 (Version None)
Quarter: 2007Q1

REPORT INFORMATION
  Report Type: 
  Country: None (occurrence: None)
  Receive Date: 20070326
  Receipt Date: 20070119
  Transmission Date: 20070707
  Serious: Yes (Hospitalization)
  Sender: FDA-Public Use
  Company Number: BR-JNJFOC-20061206009

PATIENT
  Sex: Male

DRUGS (16)
  1. TMC114 [Suspect]
     Route: 048
  2. TMC114 [Suspect]
     Indication: HIV INFECTION
     Dosage: TEMPORARY STOP
     Route: 048
  3. TENOFOVIR DISOPROXIL FUMARATE [Suspect]
     Route: 048
  4. TENOFOVIR DISOPROXIL FUMARATE [Suspect]
     Route: 048
  5. TENOFOVIR DISOPROXIL FUMARATE [Suspect]
     Indication: HIV INFECTION
     Route: 048
  6. LAMIVUDINE [Concomitant]
     Route: 048
  7. LAMIVUDINE [Concomitant]
     Route: 048
  8. LAMIVUDINE [Concomitant]
     Route: 048
  9. LAMIVUDINE [Concomitant]
     Indication: HIV INFECTION
     Route: 048
  10. ZIDOVUDINE [Concomitant]
     Route: 048
  11. ZIDOVUDINE [Concomitant]
     Route: 048
  12. ZIDOVUDINE [Concomitant]
     Indication: HIV INFECTION
     Route: 048
  13. FUROSEMIDE [Concomitant]
     Route: 048
  14. FUROSEMIDE [Concomitant]
     Route: 048
  15. LOPERAMIDE HCL [Concomitant]
     Indication: DIARRHOEA
     Route: 048
  16. ACETAMINOPHEN [Concomitant]
     Indication: INFLUENZA
     Route: 048

REACTIONS (3)
  - ANAEMIA [None]
  - PYREXIA [None]
  - RENAL FAILURE ACUTE [None]
